FAERS Safety Report 9003646 (Version 4)
Quarter: 2013Q3

REPORT INFORMATION
  Report Type: Report from Study
  Country: JP (occurrence: JP)
  Receive Date: 20130108
  Receipt Date: 20130728
  Transmission Date: 20140515
  Serious: Yes (Other)
  Sender: FDA-Public Use
  Company Number: JP-US-EMD SERONO, INC.-7185692

PATIENT
  Sex: Female
  Weight: 67 kg

DRUGS (10)
  1. GONAL-F RFF PEN [Suspect]
     Indication: OVULATION INDUCTION
     Dosage: FIRST CYCLE
     Route: 058
     Dates: start: 20120508, end: 20120517
  2. GONAL-F RFF PEN [Suspect]
     Dosage: FIRST CYCLE
     Route: 058
     Dates: start: 20120518, end: 20120525
  3. GONAL-F RFF PEN [Suspect]
     Dosage: SECOND CYCLE
     Route: 058
     Dates: start: 20120717, end: 20120724
  4. GONAL-F RFF PEN [Suspect]
     Dosage: SECOND CYCLE
     Route: 058
     Dates: start: 20120725, end: 20120802
  5. HCG [Concomitant]
     Indication: OVULATION INDUCTION
     Dosage: FIRST CYCLE
     Route: 030
     Dates: start: 20120526, end: 20120526
  6. HCG [Concomitant]
     Dosage: SECOND CYCLE
     Route: 030
     Dates: start: 20120803, end: 20120803
  7. HCG [Concomitant]
     Dosage: SECOND CYCLE
     Route: 030
     Dates: start: 20120806, end: 20120806
  8. PROGEHORMON [Concomitant]
     Indication: PRODUCT USED FOR UNKNOWN INDICATION
     Dosage: FIRST CYCLE
     Route: 030
     Dates: start: 20120529, end: 20120604
  9. METGLUCO [Concomitant]
     Indication: POLYCYSTIC OVARIES
     Dosage: FIRST CYCLE
     Route: 048
     Dates: start: 20120508, end: 20120529
  10. METGLUCO [Concomitant]
     Dosage: SECOND CYCLE
     Route: 048
     Dates: start: 20120717, end: 20121001

REACTIONS (3)
  - Foetal death [Recovered/Resolved]
  - Abortion missed [Recovered/Resolved]
  - Twin pregnancy [Recovered/Resolved]
